FAERS Safety Report 18156246 (Version 1)
Quarter: 2020Q3

REPORT INFORMATION
  Report Type: Spontaneous
  Country: US (occurrence: US)
  Receive Date: 20200815
  Receipt Date: 20200815
  Transmission Date: 20201103
  Serious: Yes (Disabling)
  Sender: FDA-Public Use
  Company Number: None

PATIENT
  Age: 60 Year
  Sex: Female
  Weight: 76.5 kg

DRUGS (5)
  1. VITAMIN C [Concomitant]
     Active Substance: ASCORBIC ACID
  2. SYNTHROID [Suspect]
     Active Substance: LEVOTHYROXINE SODIUM
     Indication: HYPOTHYROIDISM
     Dosage: ?          QUANTITY:1 TABLET(S);?
     Route: 048
  3. LETROZOLE. [Concomitant]
     Active Substance: LETROZOLE
  4. LISINOPRIL. [Concomitant]
     Active Substance: LISINOPRIL
  5. VITAMIN B COMPLEX [Concomitant]
     Active Substance: CYANOCOBALAMIN\DEXPANTHENOL\NIACINAMIDE\PYRIDOXINE HYDROCHLORIDE\RIBOFLAVIN 5^-PHOSPHATE SODIUM\THIAMINE HYDROCHLORIDE\VITAMIN B COMPLEX

REACTIONS (12)
  - Tooth disorder [None]
  - Food intolerance [None]
  - Throat tightness [None]
  - Dyspepsia [None]
  - Headache [None]
  - Allergic reaction to excipient [None]
  - Product formulation issue [None]
  - Gastrooesophageal reflux disease [None]
  - Sleep disorder [None]
  - Product substitution issue [None]
  - Fibromyalgia [None]
  - Reaction to preservatives [None]

NARRATIVE: CASE EVENT DATE: 20200713
